FAERS Safety Report 16209226 (Version 2)
Quarter: 2019Q2

REPORT INFORMATION
  Report Type: Spontaneous
  Country: ES (occurrence: ES)
  Receive Date: 20190417
  Receipt Date: 20190419
  Transmission Date: 20190711
  Serious: Yes (Other)
  Sender: FDA-Public Use
  Company Number: ES-GLAXOSMITHKLINE-ES2019067699

PATIENT
  Age: 67 Year
  Sex: Male
  Weight: 75 kg

DRUGS (1)
  1. DICLOFENAC [Suspect]
     Active Substance: DICLOFENAC
     Indication: ACTINIC KERATOSIS
     Dosage: UNK
     Route: 061
     Dates: start: 20160404, end: 20160502

REACTIONS (2)
  - Application site reaction [Recovered/Resolved]
  - Angioedema [Recovered/Resolved]

NARRATIVE: CASE EVENT DATE: 20160429
